FAERS Safety Report 20749829 (Version 2)
Quarter: 2022Q2

REPORT INFORMATION
  Report Type: Spontaneous
  Country: US (occurrence: US)
  Receive Date: 20220426
  Receipt Date: 20220427
  Transmission Date: 20220720
  Serious: Yes (Death, Hospitalization, Other)
  Sender: FDA-Public Use
  Company Number: US-UNITED THERAPEUTICS-UNT-2022-008875

PATIENT
  Age: 63 Year
  Sex: Female

DRUGS (4)
  1. REMODULIN [Suspect]
     Active Substance: TREPROSTINIL
     Indication: Pulmonary arterial hypertension
     Dosage: UNK, CONTINUING
     Route: 058
     Dates: start: 20190409
  2. REMODULIN [Suspect]
     Active Substance: TREPROSTINIL
     Dosage: 0.0439 ?G/KG, CONTINUING
     Route: 058
  3. TADALAFIL [Suspect]
     Active Substance: TADALAFIL
     Indication: Pulmonary hypertension
     Dosage: 40 MG, QD
     Route: 065
     Dates: start: 201901
  4. AMBRISENTAN [Concomitant]
     Active Substance: AMBRISENTAN
     Indication: Pulmonary hypertension
     Dosage: 10 MG, QD
     Route: 065
     Dates: start: 201901

REACTIONS (3)
  - Death [Fatal]
  - Altered state of consciousness [Unknown]
  - Device occlusion [Recovered/Resolved]

NARRATIVE: CASE EVENT DATE: 20220420
